FAERS Safety Report 20460151 (Version 1)
Quarter: 2022Q1

REPORT INFORMATION
  Report Type: Spontaneous
  Country: US (occurrence: US)
  Receive Date: 20220211
  Receipt Date: 20220211
  Transmission Date: 20220423
  Serious: No
  Sender: FDA-Public Use
  Company Number: US-BEH-2022141866

PATIENT
  Sex: Male
  Weight: 88.435 kg

DRUGS (1)
  1. HIZENTRA [Suspect]
     Active Substance: HUMAN IMMUNOGLOBULIN G
     Indication: Immunodeficiency common variable
     Dosage: 9 GRAM, QW
     Route: 058
     Dates: start: 201706

REACTIONS (4)
  - Weight decreased [Unknown]
  - No adverse event [Unknown]
  - Treatment noncompliance [Unknown]
  - Infection [Unknown]
